FAERS Safety Report 24114476 (Version 1)
Quarter: 2024Q3

REPORT INFORMATION
  Report Type: Spontaneous
  Country: DE (occurrence: DE)
  Receive Date: 20240720
  Receipt Date: 20240720
  Transmission Date: 20241016
  Serious: Yes (Hospitalization, Other)
  Sender: RANBAXY
  Company Number: DE-EMBRYOTOX-202309103

PATIENT
  Age: 1 Day
  Sex: Female
  Weight: 2.92 kg

DRUGS (4)
  1. VENLAFAXINE [Suspect]
     Active Substance: VENLAFAXINE HYDROCHLORIDE
     Indication: Depression
     Dosage: 150 MILLIGRAM, DAILY, 150 [MG/D ]
     Route: 064
     Dates: start: 20230224, end: 20231122
  2. GAVISCON [Concomitant]
     Active Substance: ALUMINUM HYDROXIDE\MAGNESIUM CARBONATE
     Indication: Dyspepsia
     Dosage: AS NEEDED, NO MORE THAN 5 APPLICATIONS
     Route: 064
  3. PROGESTERONE [Concomitant]
     Active Substance: PROGESTERONE
     Indication: Abortion threatened
     Dosage: 400 [MG/D ]/ 400 MG/D, REDUCED TO 200 MG/D IN THE COURSE
     Route: 064
  4. vigantol [Concomitant]
     Indication: Vitamin D deficiency
     Dosage: 1000 INTERNATIONAL UNIT, DAILY, 1000 [IE/D ]
     Route: 064
     Dates: start: 20230224, end: 20231122

REACTIONS (2)
  - Myoclonus [Recovered/Resolved]
  - Foetal exposure during pregnancy [Unknown]

NARRATIVE: CASE EVENT DATE: 20231101
